FAERS Safety Report 18471566 (Version 1)
Quarter: 2020Q4

REPORT INFORMATION
  Report Type: Spontaneous
  Country: US (occurrence: US)
  Receive Date: 20201105
  Receipt Date: 20201105
  Transmission Date: 20210114
  Serious: Yes (Other)
  Sender: FDA-Public Use
  Company Number: US-PURDUE-USA-2020-0164561

PATIENT
  Sex: Male

DRUGS (1)
  1. OXYCONTIN [Suspect]
     Active Substance: OXYCODONE HYDROCHLORIDE
     Indication: BACK PAIN
     Dosage: UNK
     Route: 048
     Dates: start: 2007

REACTIONS (7)
  - Bipolar disorder [Unknown]
  - Drug dependence [Unknown]
  - Mental disorder [Unknown]
  - Immune system disorder [Unknown]
  - Drug abuse [Unknown]
  - Congenital anomaly [Unknown]
  - Developmental delay [Unknown]
